APPROVED DRUG PRODUCT: CYTOTEC
Active Ingredient: MISOPROSTOL
Strength: 0.1MG
Dosage Form/Route: TABLET;ORAL
Application: N019268 | Product #003 | TE Code: AB
Applicant: PFIZER INC
Approved: Sep 21, 1990 | RLD: Yes | RS: No | Type: RX